FAERS Safety Report 9383722 (Version 5)
Quarter: 2014Q2

REPORT INFORMATION
  Report Type: Spontaneous
  Country: US (occurrence: US)
  Receive Date: 20130704
  Receipt Date: 20140409
  Transmission Date: 20141212
  Serious: Yes (Hospitalization)
  Sender: FDA-Public Use
  Company Number: US-BAYER-2013-081921

PATIENT
  Age: 89 Year
  Sex: Female
  Weight: 67.8 kg

DRUGS (14)
  1. XARELTO [Suspect]
     Indication: CEREBROVASCULAR ACCIDENT PROPHYLAXIS
     Dosage: 15 MG, QD
     Route: 048
     Dates: end: 20120502
  2. XARELTO [Interacting]
     Indication: ATRIAL FIBRILLATION
  3. XARELTO [Interacting]
     Indication: THROMBOSIS PROPHYLAXIS
  4. ACETYLSALICYLIC ACID [Interacting]
     Indication: THROMBOSIS PROPHYLAXIS
     Dosage: 325 MG, QD
     Route: 048
  5. ACETYLSALICYLIC ACID [Interacting]
     Indication: ATRIAL FIBRILLATION
     Dosage: 325 MG, QD
     Route: 048
  6. ACETYLSALICYLIC ACID [Interacting]
     Indication: CEREBROVASCULAR ACCIDENT PROPHYLAXIS
  7. LEVOTHYROXINE [Concomitant]
     Indication: PRODUCT USED FOR UNKNOWN INDICATION
     Dosage: 75 ?G, QD
     Route: 048
  8. FESOTERODINE [Concomitant]
     Indication: PRODUCT USED FOR UNKNOWN INDICATION
     Dosage: 8 MG, QD
     Route: 048
  9. LISINOPRIL [Concomitant]
     Indication: PRODUCT USED FOR UNKNOWN INDICATION
     Dosage: 20 MG, BID
     Route: 048
  10. BUSPIRONE [Concomitant]
     Indication: PRODUCT USED FOR UNKNOWN INDICATION
     Dosage: 10 MG, QD
     Route: 048
  11. LASIX [Concomitant]
     Indication: PRODUCT USED FOR UNKNOWN INDICATION
     Dosage: 20 MG, BID
     Route: 048
  12. METOPROLOL [Concomitant]
     Indication: PRODUCT USED FOR UNKNOWN INDICATION
     Dosage: 150 MG, QD
     Route: 048
  13. KLOR-CON [Concomitant]
     Indication: PRODUCT USED FOR UNKNOWN INDICATION
     Dosage: UNK
     Route: 065
  14. POTASSIUM CHLORIDE [Concomitant]
     Indication: PRODUCT USED FOR UNKNOWN INDICATION
     Dosage: 8 ?G, BID
     Route: 048

REACTIONS (14)
  - Gastrointestinal haemorrhage [Recovered/Resolved]
  - Aspartate aminotransferase increased [Recovered/Resolved]
  - Blood creatinine increased [Recovering/Resolving]
  - Activated partial thromboplastin time prolonged [Not Recovered/Not Resolved]
  - Haemoglobin decreased [Recovering/Resolving]
  - Blood sodium decreased [Not Recovered/Not Resolved]
  - Glomerular filtration rate decreased [Unknown]
  - Blood calcium decreased [Recovered/Resolved]
  - Blood albumin decreased [Not Recovered/Not Resolved]
  - Blood alkaline phosphatase increased [Not Recovered/Not Resolved]
  - International normalised ratio increased [Recovered/Resolved]
  - Arthralgia [Recovered/Resolved]
  - Asthenia [Recovered/Resolved]
  - Prothrombin time prolonged [Recovered/Resolved]
